FAERS Safety Report 12504035 (Version 1)
Quarter: 2016Q2

REPORT INFORMATION
  Report Type: Spontaneous
  Country: US (occurrence: US)
  Receive Date: 20160628
  Receipt Date: 20160628
  Transmission Date: 20160815
  Serious: Yes (Other)
  Sender: FDA-Public Use
  Company Number: US-SA-2016SA119088

PATIENT
  Age: 45 Year
  Sex: Female

DRUGS (20)
  1. CELEXA [Concomitant]
     Active Substance: CITALOPRAM HYDROBROMIDE
  2. IMITREX [Concomitant]
     Active Substance: SUMATRIPTAN SUCCINATE
  3. RIZATRIPTAN BENZOATE. [Concomitant]
     Active Substance: RIZATRIPTAN BENZOATE
  4. FENOFIBRATE. [Concomitant]
     Active Substance: FENOFIBRATE
  5. AUBAGIO [Suspect]
     Active Substance: TERIFLUNOMIDE
     Indication: MULTIPLE SCLEROSIS
     Route: 048
  6. NAMENDA [Concomitant]
     Active Substance: MEMANTINE HYDROCHLORIDE
  7. MOBIC [Concomitant]
     Active Substance: MELOXICAM
  8. VITAMIN D3 [Concomitant]
     Active Substance: CHOLECALCIFEROL
  9. LISINOPRIL. [Concomitant]
     Active Substance: LISINOPRIL
  10. NORVASC [Concomitant]
     Active Substance: AMLODIPINE BESYLATE
  11. REBIF [Concomitant]
     Active Substance: INTERFERON BETA-1A
  12. BACTRIM [Concomitant]
     Active Substance: SULFAMETHOXAZOLE\TRIMETHOPRIM
  13. CITALOPRAM HYDROBROMIDE. [Concomitant]
     Active Substance: CITALOPRAM HYDROBROMIDE
  14. IBUPROFEN. [Concomitant]
     Active Substance: IBUPROFEN
  15. ADDERALL [Concomitant]
     Active Substance: AMPHETAMINE ASPARTATE\AMPHETAMINE SULFATE\DEXTROAMPHETAMINE SACCHARATE\DEXTROAMPHETAMINE SULFATE
  16. VESICARE [Concomitant]
     Active Substance: SOLIFENACIN SUCCINATE
  17. TOPAMAX [Concomitant]
     Active Substance: TOPIRAMATE
  18. SODIUM BICARBONATE. [Concomitant]
     Active Substance: SODIUM BICARBONATE
  19. TIZANIDINE HYDROCHLORIDE. [Concomitant]
     Active Substance: TIZANIDINE HYDROCHLORIDE
  20. MACRODANTIN [Concomitant]
     Active Substance: NITROFURANTOIN

REACTIONS (2)
  - Urinary tract infection [Unknown]
  - Fall [Unknown]
